FAERS Safety Report 9784609 (Version 1)
Quarter: 2013Q4

REPORT INFORMATION
  Report Type: Report from Study
  Country: US (occurrence: US)
  Receive Date: 20131226
  Receipt Date: 20131226
  Transmission Date: 20140711
  Serious: Yes (Other)
  Sender: FDA-Public Use
  Company Number: US-ABBVIE-13P-163-1181137-00

PATIENT
  Age: 54 Year
  Sex: Male

DRUGS (1)
  1. HUMIRA [Suspect]
     Indication: PSORIATIC ARTHROPATHY

REACTIONS (6)
  - Blindness unilateral [Not Recovered/Not Resolved]
  - Cataract [Unknown]
  - Dysphonia [Unknown]
  - Rhinorrhoea [Unknown]
  - Aphonia [Unknown]
  - Visual impairment [Unknown]
